FAERS Safety Report 6342879-2 (Version None)
Quarter: 2009Q3

REPORT INFORMATION
  Report Type: 
  Country: None (occurrence: None)
  Receive Date: 20090908
  Receipt Date: 20090825
  Transmission Date: 20100115
  Serious: Yes (Other)
  Sender: FDA-Public Use
  Company Number: GB-ROCHE-653130

PATIENT
  Age: 3 Year
  Sex: Female

DRUGS (3)
  1. TAMIFLU [Suspect]
     Route: 065
     Dates: start: 20090806, end: 20090808
  2. IBUPROFEN [Concomitant]
  3. ACETAMINOPHEN [Concomitant]

REACTIONS (4)
  - PAIN [None]
  - RASH [None]
  - SKIN EXFOLIATION [None]
  - STAPHYLOCOCCAL SCALDED SKIN SYNDROME [None]
